FAERS Safety Report 15695334 (Version 7)
Quarter: 2019Q1

REPORT INFORMATION
  Report Type: Spontaneous
  Country: CA (occurrence: CA)
  Receive Date: 20181206
  Receipt Date: 20190319
  Transmission Date: 20190417
  Serious: Yes (Other)
  Sender: FDA-Public Use
  Company Number: CA-CELLTRION INC.-2018CA024412

PATIENT

DRUGS (14)
  1. INFLECTRA [Suspect]
     Active Substance: INFLIXIMAB-DYYB
     Dosage: 300 MG, AT 0, 1, 2, 6 WEEKS AND THEN EVERY 4 WEEKS
     Route: 042
     Dates: start: 20181207
  2. INFLECTRA [Suspect]
     Active Substance: INFLIXIMAB-DYYB
     Dosage: 300 MG, AT 0, 1, 2, 6 WEEKS AND THEN EVERY 4 WEEKS
     Route: 042
     Dates: start: 20190107
  3. INFLECTRA [Suspect]
     Active Substance: INFLIXIMAB-DYYB
     Dosage: 300 MG, AT 0, 1, 2, 6 WEEKS AND THEN EVERY 4 WEEKS
     Route: 042
     Dates: start: 20190304
  4. INFLECTRA [Suspect]
     Active Substance: INFLIXIMAB-DYYB
     Dosage: 300 MG, AT 0, 1, 2, 6 WEEKS AND THEN EVERY 4 WEEKS
     Route: 042
     Dates: start: 20190204
  5. INFLECTRA [Suspect]
     Active Substance: INFLIXIMAB-DYYB
     Dosage: 300 MG, AT 0, 1, 2, 6 WEEKS AND THEN EVERY 4 WEEKS
     Route: 042
     Dates: start: 20181207
  6. INFLECTRA [Suspect]
     Active Substance: INFLIXIMAB-DYYB
     Indication: COLITIS ULCERATIVE
     Dosage: 300 MG, AT 0, 1, 2, 6 WEEKS AND THEN EVERY 4 WEEKS
     Route: 042
     Dates: start: 201811
  7. INFLECTRA [Suspect]
     Active Substance: INFLIXIMAB-DYYB
     Dosage: 300 MG, AT 0, 1, 2, 6 WEEKS AND THEN EVERY 4 WEEKS
     Route: 042
     Dates: start: 20181126
  8. INFLECTRA [Suspect]
     Active Substance: INFLIXIMAB-DYYB
     Dosage: 300 MG, AT 0, 1, 2, 6 WEEKS AND THEN EVERY 4 WEEKS
     Route: 042
     Dates: start: 20190107
  9. PREDNISONE. [Concomitant]
     Active Substance: PREDNISONE
     Dosage: 40 MG TAPERING BY 5 MG UNTIL 20 MG
  10. PENTASA [Concomitant]
     Active Substance: MESALAMINE
     Dosage: 1 DAY IN EVENING SUPPOSITORY
  11. VITAMINE D [Concomitant]
     Active Substance: CHOLECALCIFEROL
     Dosage: 3000 IU, DAILY
  12. MEZAVANT [Concomitant]
     Active Substance: MESALAMINE
     Dosage: 1.2 G, DAILY
  13. VITAMIN B12 [Concomitant]
     Active Substance: CYANOCOBALAMIN
     Dosage: 1 DAILY IN EVENING SUPPOSITORY
  14. ENTOCORT [Concomitant]
     Active Substance: BUDESONIDE
     Dosage: MORNING ENEMA

REACTIONS (10)
  - Product use issue [Unknown]
  - Therapeutic response shortened [Unknown]
  - Abdominal pain [Unknown]
  - Bowel movement irregularity [Unknown]
  - Product use issue [Unknown]
  - Condition aggravated [Recovering/Resolving]
  - Heart rate irregular [Unknown]
  - Abdominal distension [Unknown]
  - Weight increased [Unknown]
  - Diarrhoea [Unknown]

NARRATIVE: CASE EVENT DATE: 201811
